FAERS Safety Report 9954109 (Version 1)
Quarter: 2014Q1

REPORT INFORMATION
  Report Type: Spontaneous
  Country: DE (occurrence: DE)
  Receive Date: 20140304
  Receipt Date: 20140304
  Transmission Date: 20141002
  Serious: Yes (Death)
  Sender: FDA-Public Use
  Company Number: DE-MYLANLABS-2014S1003821

PATIENT
  Age: 1 Day
  Sex: Male
  Weight: 2.7 kg

DRUGS (1)
  1. CITALOPRAM [Suspect]
     Indication: PANIC DISORDER
     Dosage: 40 [MG/D ]
     Route: 064
     Dates: start: 20110415, end: 20111229

REACTIONS (9)
  - Pulmonary hypoplasia [Fatal]
  - Patent ductus arteriosus [Not Recovered/Not Resolved]
  - Atrial septal defect [Not Recovered/Not Resolved]
  - Congenital tricuspid valve incompetence [Not Recovered/Not Resolved]
  - Congenital pulmonary hypertension [Not Recovered/Not Resolved]
  - Bladder trabeculation [Not Recovered/Not Resolved]
  - Neonatal respiratory distress syndrome [Fatal]
  - Cryptorchism [Not Recovered/Not Resolved]
  - Exposure during pregnancy [Recovered/Resolved]
